FAERS Safety Report 17565730 (Version 2)
Quarter: 2020Q1

REPORT INFORMATION
  Report Type: Spontaneous
  Country: GB (occurrence: GB)
  Receive Date: 20200320
  Receipt Date: 20200320
  Transmission Date: 20200409
  Serious: Yes (Other)
  Sender: FDA-Public Use
  Company Number: GB-PFIZER INC-2020111771

PATIENT
  Age: 68 Year
  Sex: Male

DRUGS (7)
  1. RAMIPRIL. [Suspect]
     Active Substance: RAMIPRIL
     Dosage: UNK
  2. METOLAZON [Concomitant]
     Active Substance: METOLAZONE
     Dosage: UNK, 2.5 OT, Q3W
  3. BISOPROLOL [Suspect]
     Active Substance: BISOPROLOL
     Dosage: UNK
  4. IVABRADINE [Suspect]
     Active Substance: IVABRADINE
     Dosage: UNK, 2X/DAY, (UNK, BID)
  5. BUMETANIDE. [Concomitant]
     Active Substance: BUMETANIDE
     Dosage: UNK UNK, 2X/DAY, (3 OT, BID)
     Route: 065
  6. EPLERENONE. [Suspect]
     Active Substance: EPLERENONE
     Dosage: UNK
  7. ISMN [Suspect]
     Active Substance: ISOSORBIDE MONONITRATE
     Dosage: UNK

REACTIONS (5)
  - Blood pressure decreased [Unknown]
  - Glomerular filtration rate decreased [Unknown]
  - Oedema peripheral [Unknown]
  - Venous pressure jugular increased [Unknown]
  - Sinus bradycardia [Unknown]
